FAERS Safety Report 20137871 (Version 2)
Quarter: 2022Q1

REPORT INFORMATION
  Report Type: Spontaneous
  Country: GB (occurrence: GB)
  Receive Date: 20211202
  Receipt Date: 20220221
  Transmission Date: 20220423
  Serious: Yes (Hospitalization, Other)
  Sender: FDA-Public Use
  Company Number: None

PATIENT
  Age: 75 Year
  Sex: Male
  Weight: 85 kg

DRUGS (1)
  1. PANZYGA [Suspect]
     Active Substance: HUMAN IMMUNOGLOBULIN G
     Indication: Myasthenia gravis
     Dosage: 180
     Route: 042
     Dates: start: 20211110, end: 20211115

REACTIONS (3)
  - Acute myocardial infarction [Unknown]
  - Pulmonary embolism [Unknown]
  - Lacunar stroke [Unknown]

NARRATIVE: CASE EVENT DATE: 20211111
